FAERS Safety Report 11572607 (Version 2)
Quarter: 2015Q4

REPORT INFORMATION
  Report Type: Spontaneous
  Country: IT (occurrence: IT)
  Receive Date: 20150929
  Receipt Date: 20151006
  Transmission Date: 20160304
  Serious: Yes (Other)
  Sender: FDA-Public Use
  Company Number: IT-PFIZER INC-2015320261

PATIENT
  Age: 61 Year
  Sex: Male

DRUGS (7)
  1. RAMIPRIL. [Concomitant]
     Active Substance: RAMIPRIL
     Indication: HYPERTENSION
     Dosage: 5 MG, UNK
     Route: 048
  2. CARDIOASPIRIN [Concomitant]
     Active Substance: ASPIRIN
     Indication: CEREBROVASCULAR ACCIDENT PROPHYLAXIS
     Dosage: 100 MG, UNK
     Route: 048
  3. REPAGLINIDE. [Interacting]
     Active Substance: REPAGLINIDE
     Indication: DIABETES MELLITUS
     Dosage: 1.5 MG, DAILY
     Route: 048
     Dates: start: 20140101, end: 20150309
  4. AMLODIPINE [Concomitant]
     Active Substance: AMLODIPINE BESYLATE
     Indication: HYPERTENSION
     Dosage: 5 MG, UNK
     Route: 048
  5. VFEND [Suspect]
     Active Substance: VORICONAZOLE
     Indication: PNEUMONIA FUNGAL
     Dosage: 400 MG, DAILY
     Route: 048
     Dates: start: 20150224, end: 20150309
  6. ANTRA [Interacting]
     Active Substance: OMEPRAZOLE
     Indication: PROPHYLAXIS AGAINST GASTROINTESTINAL ULCER
     Dosage: 20 MG, DAILY
     Route: 048
     Dates: start: 20150101, end: 20150309
  7. ADENURIC [Interacting]
     Active Substance: FEBUXOSTAT
     Indication: HYPERURICAEMIA
     Dosage: 80 MG, DAILY
     Route: 048
     Dates: start: 20140101, end: 20150309

REACTIONS (3)
  - Rhabdomyolysis [Recovered/Resolved]
  - Drug level increased [Recovered/Resolved]
  - Drug interaction [Recovered/Resolved]

NARRATIVE: CASE EVENT DATE: 20150309
